FAERS Safety Report 13674628 (Version 2)
Quarter: 2017Q3

REPORT INFORMATION
  Report Type: Report from Study
  Country: CA (occurrence: CA)
  Receive Date: 20170621
  Receipt Date: 20170706
  Transmission Date: 20171127
  Serious: Yes (Hospitalization)
  Sender: FDA-Public Use
  Company Number: CA-TAKEDA-2017MPI005394

PATIENT
  Age: 62 Year
  Sex: Female

DRUGS (2)
  1. IXAZOMIB [Suspect]
     Active Substance: IXAZOMIB
     Indication: PLASMA CELL MYELOMA
     Dosage: 3 MG, UNK
     Route: 048
     Dates: start: 20170202
  2. IXAZOMIB [Suspect]
     Active Substance: IXAZOMIB
     Dosage: 2.3 MG, UNK
     Route: 048
     Dates: start: 20170617

REACTIONS (8)
  - Asthenia [Unknown]
  - Nasopharyngitis [Unknown]
  - Myalgia [Unknown]
  - Pyrexia [Recovering/Resolving]
  - Chills [Unknown]
  - Fatigue [Unknown]
  - Bone pain [Unknown]
  - Decreased appetite [Unknown]
